FAERS Safety Report 20338964 (Version 1)
Quarter: 2022Q1

REPORT INFORMATION
  Report Type: Spontaneous
  Country: None (occurrence: US)
  Receive Date: 20220116
  Receipt Date: 20220116
  Transmission Date: 20220423
  Serious: No
  Sender: FDA-Public Use
  Company Number: US-Intellipharmaceutics Corp.-2123982

PATIENT
  Sex: Male

DRUGS (1)
  1. DEXMETHYLPHENIDATE HYDROCHLORIDE [Suspect]
     Active Substance: DEXMETHYLPHENIDATE HYDROCHLORIDE
     Indication: Product used for unknown indication
     Route: 065

REACTIONS (2)
  - Underdose [Unknown]
  - Product availability issue [Unknown]
